FAERS Safety Report 7387042-1 (Version None)
Quarter: 2011Q1

REPORT INFORMATION
  Report Type: 
  Country: None (occurrence: None)
  Receive Date: 20110331
  Receipt Date: 20110328
  Transmission Date: 20110831
  Serious: No
  Sender: FDA-Public Use
  Company Number: JP-EISAI INC-E2090-01551-SPO-JP

PATIENT
  Age: 21 Year
  Sex: Female

DRUGS (1)
  1. EXCEGRAN [Suspect]
     Dosage: UNKNOWN
     Route: 048
     Dates: start: 20100101, end: 20100201

REACTIONS (1)
  - DRUG RASH WITH EOSINOPHILIA AND SYSTEMIC SYMPTOMS [None]
